FAERS Safety Report 6977626-4 (Version None)
Quarter: 2010Q3

REPORT INFORMATION
  Report Type: 
  Country: None (occurrence: None)
  Receive Date: 20100913
  Receipt Date: 20100901
  Transmission Date: 20110219
  Serious: Yes (Hospitalization)
  Sender: FDA-Public Use
  Company Number: US-BIOGENIDEC-2010BI028918

PATIENT
  Age: 56 Year
  Sex: Female

DRUGS (1)
  1. AVONEX [Suspect]
     Indication: MULTIPLE SCLEROSIS
     Route: 030
     Dates: start: 20081201

REACTIONS (6)
  - CARDIAC ENZYMES INCREASED [None]
  - DILATATION VENTRICULAR [None]
  - HEADACHE [None]
  - MUSCULAR WEAKNESS [None]
  - PERICARDIAL EFFUSION [None]
  - VISION BLURRED [None]
